FAERS Safety Report 9275060 (Version 2)
Quarter: 2013Q2

REPORT INFORMATION
  Report Type: Report from Study
  Country: AU (occurrence: AU)
  Receive Date: 20130507
  Receipt Date: 20130508
  Transmission Date: 20140414
  Serious: Yes (Death, Hospitalization)
  Sender: FDA-Public Use
  Company Number: PHHO2013AU005300

PATIENT
  Age: 45 Year
  Sex: Male
  Weight: 79 kg

DRUGS (4)
  1. ACLASTA/ZOLEDRONATE [Suspect]
     Indication: OSTEOPENIA
     Dosage: 5 MG, UNK
     Route: 042
     Dates: start: 20130214, end: 20130214
  2. CALCIUM CARBONATE [Concomitant]
     Indication: OSTEOPENIA
     Dosage: 1500 MG, QD
     Dates: start: 20130214
  3. AVANZA [Concomitant]
     Indication: DEPRESSION
     Dosage: 45 MG, NARTE
     Dates: start: 20130123
  4. VALIUM [Concomitant]
     Indication: DEPRESSION
     Dosage: 1 BD, PRN
     Dates: start: 20121003

REACTIONS (1)
  - Loss of consciousness [Fatal]
